FAERS Safety Report 4967904-2 (Version None)
Quarter: 2006Q2

REPORT INFORMATION
  Report Type: 
  Country: None (occurrence: None)
  Receive Date: 20060410
  Receipt Date: 20060331
  Transmission Date: 20061013
  Serious: Yes (Hospitalization)
  Sender: FDA-Public Use
  Company Number: US-MERCK-0604USA00269

PATIENT
  Age: 71 Year
  Sex: Male
  Weight: 77 kg

DRUGS (8)
  1. VIOXX [Suspect]
     Indication: ARTHRITIS
     Route: 048
     Dates: start: 20040115, end: 20040916
  2. ATENOLOL [Concomitant]
     Route: 065
  3. NIFEDIPINE [Concomitant]
     Route: 065
  4. COZAAR [Concomitant]
     Route: 065
  5. LIPITOR [Concomitant]
     Route: 065
  6. FLOMOX [Concomitant]
     Route: 065
  7. PLAVIX [Concomitant]
     Route: 065
  8. PROBENECID [Concomitant]
     Route: 065

REACTIONS (2)
  - CAROTID ARTERY OCCLUSION [None]
  - MYOCARDIAL INFARCTION [None]
